FAERS Safety Report 6462042-4 (Version None)
Quarter: 2009Q4

REPORT INFORMATION
  Report Type: 
  Country: None (occurrence: None)
  Receive Date: 20091130
  Receipt Date: 20091112
  Transmission Date: 20100525
  Serious: Yes (Hospitalization)
  Sender: FDA-Public Use
  Company Number: PHHY2009AU49320

PATIENT
  Sex: Male

DRUGS (1)
  1. CLOZARIL [Suspect]
     Dosage: 300 MG, UNK
     Dates: start: 20050725

REACTIONS (3)
  - NEUTROPHIL COUNT INCREASED [None]
  - SCHIZOPHRENIA [None]
  - WHITE BLOOD CELL COUNT INCREASED [None]
